FAERS Safety Report 7729953-0 (Version None)
Quarter: 2011Q3

REPORT INFORMATION
  Report Type: 
  Country: None (occurrence: None)
  Receive Date: 20110906
  Receipt Date: 20110902
  Transmission Date: 20111222
  Serious: Yes (Other)
  Sender: FDA-Public Use
  Company Number: BE-PFIZER INC-2011205439

PATIENT
  Age: 57 Year
  Sex: Female
  Weight: 53 kg

DRUGS (9)
  1. AVELOX [Interacting]
     Indication: BRONCHITIS
     Dosage: UNK
     Route: 048
     Dates: start: 20110718
  2. PRIMPERAN TAB [Concomitant]
     Route: 048
  3. RHINOSPRAY [Concomitant]
     Route: 045
  4. MEDROL [Suspect]
     Indication: BRONCHITIS
     Dosage: UNK
     Route: 048
     Dates: start: 20110718, end: 20110728
  5. ESTROGEL [Concomitant]
     Indication: MENOPAUSE
     Dosage: UNK
     Route: 062
  6. XYZAL [Concomitant]
     Indication: ASTHMA
     Dosage: UNK
     Route: 048
  7. PROGESTERONE [Concomitant]
     Indication: MENOPAUSE
     Dosage: UNK
     Route: 048
  8. MONTELUKAST [Concomitant]
     Indication: ASTHMA
     Dosage: UNK
     Route: 048
  9. SYMBICORT [Concomitant]
     Indication: ASTHMA
     Dosage: UNK
     Route: 055

REACTIONS (3)
  - ANOSMIA [None]
  - DRUG INTERACTION [None]
  - AGEUSIA [None]
